FAERS Safety Report 6491776-0 (Version None)
Quarter: 2009Q4

REPORT INFORMATION
  Report Type: 
  Country: None (occurrence: None)
  Receive Date: 20091210
  Receipt Date: 20091130
  Transmission Date: 20100525
  Serious: Yes (Other)
  Sender: FDA-Public Use
  Company Number: 233634J09USA

PATIENT
  Age: 51 Year
  Sex: Female

DRUGS (8)
  1. REBIF [Suspect]
     Indication: MULTIPLE SCLEROSIS
     Dosage: 44 MCG, 3 IN 1 WEEKS, SUBCUTANEOUS; 44 MCG, 3 IN 1 WEEKS, SUBCUTANEOUS
     Route: 058
     Dates: start: 20060220, end: 20090101
  2. REBIF [Suspect]
     Indication: MULTIPLE SCLEROSIS
     Dosage: 44 MCG, 3 IN 1 WEEKS, SUBCUTANEOUS; 44 MCG, 3 IN 1 WEEKS, SUBCUTANEOUS
     Route: 058
     Dates: start: 20091001
  3. LEVOTHYROXINE (LEVOTHYROXINE /00068001/) [Concomitant]
  4. VITAMIN D [Concomitant]
  5. METOPROLOL          (METOPROLOL /00376901/) [Concomitant]
  6. BENICAR HCT              (BENICAR HCT) [Concomitant]
  7. CALCIUM [Concomitant]
  8. SIMVASTATIN [Concomitant]

REACTIONS (3)
  - BREAST MASS [None]
  - LYMPHADENOPATHY [None]
  - SQUAMOUS CELL CARCINOMA [None]
